FAERS Safety Report 8982869 (Version 1)
Quarter: 2012Q4

REPORT INFORMATION
  Report Type: 
  Country: US (occurrence: US)
  Receive Date: 20121224
  Receipt Date: 20121224
  Transmission Date: 20130627
  Serious: Yes (Other)
  Sender: FDA-Public Use
  Company Number: US-PFIZER INC-2012322144

PATIENT
  Age: 24 Year
  Sex: Male

DRUGS (7)
  1. DILANTIN [Suspect]
     Dosage: 200 mg, (Take 2 100 mg capsules at badtime)
     Route: 048
  2. STRATTERA [Concomitant]
     Dosage: 80 mg, Daily
     Route: 048
  3. NEXIUM [Concomitant]
     Dosage: 40 mg, Every morning before breakfast
     Route: 048
  4. CRESTOR [Concomitant]
     Dosage: 10 mg, Every evening
     Route: 048
  5. TOPAMAX [Concomitant]
     Dosage: 200 mg, 2x/day
     Route: 048
  6. VITAMIN B12 [Concomitant]
     Dosage: 2500 ug, Daily
     Route: 060
  7. VITAMIN D3 [Concomitant]
     Dosage: 2000 Unit, Daily
     Route: 048

REACTIONS (6)
  - Convulsion [Unknown]
  - Blood cholesterol increased [Unknown]
  - Gastrooesophageal reflux disease [Unknown]
  - Attention deficit/hyperactivity disorder [Unknown]
  - Vitamin D deficiency [Unknown]
  - Vitamin B12 deficiency [Unknown]
